FAERS Safety Report 23063510 (Version 1)
Quarter: 2023Q4

REPORT INFORMATION
  Report Type: Spontaneous
  Country: DE (occurrence: DE)
  Receive Date: 20231013
  Receipt Date: 20231013
  Transmission Date: 20240110
  Serious: Yes (Hospitalization)
  Sender: FDA-Public Use
  Company Number: DE-MYLANLABS-2023M1097876

PATIENT
  Age: 3 Decade
  Sex: Female

DRUGS (6)
  1. HEPARIN [Suspect]
     Active Substance: HEPARIN SODIUM
     Indication: Anticoagulant therapy
     Dosage: UNK
     Route: 065
  2. FONDAPARINUX [Suspect]
     Active Substance: FONDAPARINUX
     Indication: Anticoagulant therapy
     Dosage: 10 MILLIGRAM, QD
     Route: 065
  3. FONDAPARINUX [Suspect]
     Active Substance: FONDAPARINUX
     Dosage: 5 MILLIGRAM, QD, DOSE AGAIN INCREASED TO 10 MG/DAY
     Route: 065
  4. FONDAPARINUX [Suspect]
     Active Substance: FONDAPARINUX
     Dosage: 10 MILLIGRAM, QD
     Route: 065
  5. BETAMETHASONE ACETATE [Suspect]
     Active Substance: BETAMETHASONE ACETATE
     Indication: Maternal therapy to enhance foetal lung maturity
     Dosage: UNK
     Route: 065
  6. APIXABAN [Concomitant]
     Active Substance: APIXABAN
     Indication: Anticoagulant therapy
     Dosage: UNK
     Route: 065

REACTIONS (6)
  - Heparin-induced thrombocytopenia [Unknown]
  - Maternal exposure during pregnancy [Recovered/Resolved]
  - Subchorionic haematoma [Unknown]
  - Vaginal haemorrhage [Unknown]
  - Arterial thrombosis [Unknown]
  - Maternal exposure during breast feeding [Recovered/Resolved]
